FAERS Safety Report 12689307 (Version 6)
Quarter: 2017Q4

REPORT INFORMATION
  Report Type: Report from Study
  Country: TH (occurrence: TH)
  Receive Date: 20160826
  Receipt Date: 20171207
  Transmission Date: 20180320
  Serious: Yes (Hospitalization)
  Sender: FDA-Public Use
  Company Number: PHHO2016TH011692

PATIENT
  Age: 48 Year
  Sex: Male
  Weight: 75.3 kg

DRUGS (3)
  1. PASIREOTIDE. [Suspect]
     Active Substance: PASIREOTIDE
     Indication: ACROMEGALY
     Dosage: 40 MG, Q28 DAYS
     Route: 030
     Dates: start: 20151204, end: 20160226
  2. PASIREOTIDE. [Suspect]
     Active Substance: PASIREOTIDE
     Dosage: 60 MG, Q28DAYS
     Route: 030
     Dates: start: 20160325
  3. METFORMIN [Concomitant]
     Active Substance: METFORMIN HYDROCHLORIDE
     Indication: DIABETES MELLITUS
     Dosage: UNK
     Route: 065
     Dates: start: 20160418, end: 20160808

REACTIONS (1)
  - Kidney rupture [Recovered/Resolved]

NARRATIVE: CASE EVENT DATE: 20160807
